FAERS Safety Report 16278444 (Version 2)
Quarter: 2019Q4

REPORT INFORMATION
  Report Type: Spontaneous
  Country: US (occurrence: US)
  Receive Date: 20190506
  Receipt Date: 20191024
  Transmission Date: 20200122
  Serious: Yes (Other)
  Sender: FDA-Public Use
  Company Number: US-ASTRAZENECA-2019SE10636

PATIENT
  Age: 21474 Day
  Sex: Male
  Weight: 83 kg

DRUGS (14)
  1. PHOSLO [Concomitant]
     Active Substance: CALCIUM ACETATE
  2. TOPAMAX [Concomitant]
     Active Substance: TOPIRAMATE
  3. COLACE [Concomitant]
     Active Substance: DOCUSATE SODIUM
  4. COREG [Concomitant]
     Active Substance: CARVEDILOL
  5. COUMADIN [Concomitant]
     Active Substance: WARFARIN SODIUM
  6. PROTONIX [Suspect]
     Active Substance: PANTOPRAZOLE SODIUM
     Route: 065
  7. AMBIEN [Concomitant]
     Active Substance: ZOLPIDEM TARTRATE
  8. EPOGEN [Concomitant]
     Active Substance: ERYTHROPOIETIN
  9. PRILOSEC [Suspect]
     Active Substance: OMEPRAZOLE MAGNESIUM
     Route: 048
  10. CELEXA [Concomitant]
     Active Substance: CITALOPRAM HYDROBROMIDE
  11. APRESOLINE HYDROCHLORIDE [Concomitant]
     Active Substance: HYDRALAZINE HYDROCHLORIDE
  12. VITAMIN D [Concomitant]
     Active Substance: VITAMIN D NOS
  13. NEURONTIN [Concomitant]
     Active Substance: GABAPENTIN
  14. NORVASC [Concomitant]
     Active Substance: AMLODIPINE BESYLATE

REACTIONS (7)
  - Chronic kidney disease [Unknown]
  - Renal injury [Unknown]
  - Renal tubular necrosis [Unknown]
  - Renal failure [Unknown]
  - Rebound acid hypersecretion [Unknown]
  - Acute kidney injury [Unknown]
  - End stage renal disease [Unknown]

NARRATIVE: CASE EVENT DATE: 20141007
